FAERS Safety Report 6648588-4 (Version None)
Quarter: 2010Q1

REPORT INFORMATION
  Report Type: 
  Country: None (occurrence: None)
  Receive Date: 20100324
  Receipt Date: 20091203
  Transmission Date: 20100710
  Serious: Yes (Hospitalization)
  Sender: FDA-Public Use
  Company Number: US-SANOFI-AVENTIS-A03200904840

PATIENT
  Age: 80 Year
  Sex: Female
  Weight: 60 kg

DRUGS (18)
  1. DRONEDARONE HCL [Suspect]
     Indication: ATRIAL FIBRILLATION
     Dosage: UNIT DOSE: 400 MG
     Route: 048
     Dates: start: 20090925, end: 20091002
  2. ZOLOFT [Interacting]
     Indication: DRUG USE FOR UNKNOWN INDICATION
     Route: 048
     Dates: end: 20091002
  3. XANAX [Concomitant]
     Indication: DRUG USE FOR UNKNOWN INDICATION
     Route: 065
  4. MAGNESIUM SULFATE [Concomitant]
     Indication: DRUG USE FOR UNKNOWN INDICATION
     Route: 042
  5. PHENAZOPYRIDINE HCL TAB [Concomitant]
     Indication: DRUG USE FOR UNKNOWN INDICATION
     Route: 065
  6. ALBUTEROL [Concomitant]
     Indication: DRUG USE FOR UNKNOWN INDICATION
     Route: 065
  7. XOPENEX [Concomitant]
     Indication: DRUG USE FOR UNKNOWN INDICATION
     Route: 065
  8. TYLENOL-500 [Concomitant]
     Indication: DRUG USE FOR UNKNOWN INDICATION
     Route: 065
  9. COUMADIN [Concomitant]
     Route: 065
  10. ASPIRIN [Concomitant]
     Route: 065
  11. DIGOXIN [Concomitant]
  12. SINGULAIR [Concomitant]
  13. CALCIUM/VITAMIN D [Concomitant]
  14. SPIRIVA [Concomitant]
  15. PERCOCET [Concomitant]
  16. ADVAIR DISKUS 100/50 [Concomitant]
  17. BENADRYL [Concomitant]
  18. PREDNISONE [Concomitant]

REACTIONS (2)
  - DRUG INTERACTION [None]
  - SEROTONIN SYNDROME [None]
